FAERS Safety Report 4597897-1 (Version None)
Quarter: 2005Q1

REPORT INFORMATION
  Report Type: 
  Country: None (occurrence: None)
  Receive Date: 20050301
  Receipt Date: 20050216
  Transmission Date: 20050727
  Serious: No
  Sender: FDA-Public Use
  Company Number: PHEH2004US13710

PATIENT
  Age: 86 Year
  Sex: Female
  Weight: 45.3597 kg

DRUGS (2)
  1. VISUDYNE [Suspect]
     Indication: MACULAR DEGENERATION
     Dates: start: 20041101, end: 20041101
  2. KENALOG [Suspect]
     Dates: start: 20041108, end: 20041108

REACTIONS (5)
  - BACK PAIN [None]
  - GLAUCOMA [None]
  - INFUSION RELATED REACTION [None]
  - INTRAOCULAR PRESSURE INCREASED [None]
  - RETINAL OEDEMA [None]
